FAERS Safety Report 8304030-9 (Version None)
Quarter: 2012Q2

REPORT INFORMATION
  Report Type: 
  Country: None (occurrence: None)
  Receive Date: 20120418
  Receipt Date: 20120404
  Transmission Date: 20120825
  Serious: Yes (Hospitalization)
  Sender: FDA-Public Use
  Company Number: AUR-APL-2009-01257

PATIENT
  Age: 68 Year
  Sex: Female
  Weight: 71.65 kg

DRUGS (15)
  1. FOSAMAX [Concomitant]
  2. FLUTICASONE PROPIONATE [Concomitant]
  3. CITALOPRAM HYDROBROMIDE [Concomitant]
  4. HYDROCHLOROTHIAZIDE [Suspect]
     Indication: PRODUCT USED FOR UNKNOWN INDICATION
     Dosage: 6.25 MG (6.25 MG, 1 IN 1 D),ORAL
     Route: 048
     Dates: start: 20090827, end: 20091029
  5. INVESTIGATIONAL DRUG (INVESTIGATIONAL DRUG) [Concomitant]
     Indication: DEMENTIA ALZHEIMER'S TYPE
     Dates: end: 20091029
  6. SIMVASTATIN [Concomitant]
  7. LEVOTHYROXINE SODIUM [Concomitant]
  8. ARICEPT [Concomitant]
  9. ACETAMINOPHEN [Concomitant]
  10. VITAMIN B COMPLEX (B-KOMPLEX) [Concomitant]
  11. SPIRIVA [Concomitant]
  12. LORAZEPAM [Concomitant]
  13. CALCIUM WITH VITAMIN D (LEKOVIT CA) [Concomitant]
  14. BENADRYL [Concomitant]
  15. FOLIC ACID [Concomitant]

REACTIONS (2)
  - DEHYDRATION [None]
  - PRESYNCOPE [None]
